FAERS Safety Report 12657515 (Version 1)
Quarter: 2016Q3

REPORT INFORMATION
  Report Type: Spontaneous
  Country: US (occurrence: US)
  Receive Date: 20160816
  Receipt Date: 20160816
  Transmission Date: 20161109
  Serious: No
  Sender: FDA-Public Use
  Company Number: US-LUNDBECK-DKLU2014591

PATIENT
  Sex: Female

DRUGS (3)
  1. NORTHERA [Suspect]
     Active Substance: DROXIDOPA
     Indication: AUTONOMIC FAILURE SYNDROME
     Route: 065
     Dates: start: 201508
  2. NORTHERA [Suspect]
     Active Substance: DROXIDOPA
     Indication: NEUROPATHY PERIPHERAL
     Route: 065
  3. NORTHERA [Suspect]
     Active Substance: DROXIDOPA
     Indication: ORTHOSTATIC HYPOTENSION

REACTIONS (3)
  - Muscular weakness [Unknown]
  - Drug intolerance [Recovered/Resolved]
  - Chest pain [Unknown]
